FAERS Safety Report 12382317 (Version 1)
Quarter: 2016Q2

REPORT INFORMATION
  Report Type: Spontaneous
  Country: US (occurrence: US)
  Receive Date: 20160518
  Receipt Date: 20160518
  Transmission Date: 20160815
  Serious: No
  Sender: FDA-Public Use
  Company Number: US-PERRIGO-15US004052

PATIENT
  Age: 23 Year
  Sex: Female
  Weight: 54.42 kg

DRUGS (3)
  1. VITAMINS                           /90003601/ [Concomitant]
     Active Substance: VITAMINS
     Indication: VITAMIN SUPPLEMENTATION
     Dosage: UNK
     Route: 048
     Dates: start: 20150412
  2. MICONAZOLE 3 COMBINATION PACK [Suspect]
     Active Substance: MICONAZOLE NITRATE
     Indication: VULVOVAGINAL MYCOTIC INFECTION
     Dosage: 200 MG, SINGLE
     Route: 067
     Dates: start: 20150414, end: 20150414
  3. MICONAZOLE 3 COMBINATION PACK [Suspect]
     Active Substance: MICONAZOLE NITRATE
     Indication: VULVOVAGINAL MYCOTIC INFECTION
     Dosage: 1 THIN APPLICATION, SINGLE
     Route: 061
     Dates: start: 20150415, end: 20150415

REACTIONS (3)
  - Drug ineffective [Unknown]
  - Vaginal discharge [Unknown]
  - Condition aggravated [Unknown]

NARRATIVE: CASE EVENT DATE: 20150414
